FAERS Safety Report 15473439 (Version 1)
Quarter: 2018Q4

REPORT INFORMATION
  Report Type: Spontaneous
  Country: FR (occurrence: FR)
  Receive Date: 20181008
  Receipt Date: 20181008
  Transmission Date: 20190205
  Serious: Yes (Death, Hospitalization)
  Sender: FDA-Public Use
  Company Number: FR-SA-2018SA276591

PATIENT
  Age: 46 Year
  Sex: Female

DRUGS (6)
  1. TAXOTERE [Suspect]
     Active Substance: DOCETAXEL
     Dosage: 144 MG, QCY
     Route: 041
     Dates: start: 20180709, end: 20180709
  2. TRASTUZUMAB. [Suspect]
     Active Substance: TRASTUZUMAB
     Indication: BREAST CANCER METASTATIC
     Dosage: 600 MG, QCY
     Route: 058
     Dates: start: 20180503, end: 20180503
  3. PERJETA [Suspect]
     Active Substance: PERTUZUMAB
     Indication: BREAST CANCER METASTATIC
     Dosage: 420 MG, QCY
     Route: 041
     Dates: start: 20180503, end: 20180503
  4. TAXOTERE [Suspect]
     Active Substance: DOCETAXEL
     Indication: BREAST CANCER METASTATIC
     Dosage: 144 MG, QCY
     Route: 041
     Dates: start: 20180503, end: 20180503
  5. TRASTUZUMAB. [Suspect]
     Active Substance: TRASTUZUMAB
     Dosage: 600 MG, QCY
     Route: 058
     Dates: start: 20180709, end: 20180709
  6. PERJETA [Suspect]
     Active Substance: PERTUZUMAB
     Dosage: 420 MG, QCY
     Route: 041
     Dates: start: 20180709, end: 20180709

REACTIONS (3)
  - Dermatitis bullous [Fatal]
  - Lung disorder [Fatal]
  - Herpes virus infection [Fatal]

NARRATIVE: CASE EVENT DATE: 201807
